FAERS Safety Report 24410101 (Version 1)
Quarter: 2024Q4

REPORT INFORMATION
  Report Type: Spontaneous
  Country: FR (occurrence: FR)
  Receive Date: 20241008
  Receipt Date: 20241008
  Transmission Date: 20250115
  Serious: Yes (Hospitalization, Other)
  Sender: SANDOZ
  Company Number: FR-SANDOZ-SDZ2024FR084840

PATIENT
  Age: 44 Year
  Sex: Male

DRUGS (4)
  1. AMLODIPINE [Suspect]
     Active Substance: AMLODIPINE BESYLATE
     Indication: Product used for unknown indication
     Dosage: UNK
     Route: 065
  2. HYDROCHLOROTHIAZIDE [Suspect]
     Active Substance: HYDROCHLOROTHIAZIDE
     Indication: Product used for unknown indication
     Dosage: UNK
     Route: 065
  3. IRBESARTAN [Suspect]
     Active Substance: IRBESARTAN
     Indication: Product used for unknown indication
     Dosage: UNK
     Route: 065
  4. NORFLOXACIN [Suspect]
     Active Substance: NORFLOXACIN
     Indication: Urinary tract infection
     Dosage: 400 MG, TID (BID)
     Route: 065

REACTIONS (1)
  - Superior mesenteric artery dissection [Unknown]
